FAERS Safety Report 5970232-X (Version None)
Quarter: 2008Q4

REPORT INFORMATION
  Report Type: 
  Country: None (occurrence: None)
  Receive Date: 20081126
  Receipt Date: 20081017
  Transmission Date: 20090506
  Serious: No
  Sender: FDA-Public Use
  Company Number: US-ABBOTT-08P-163-0482536-00

PATIENT
  Sex: Male

DRUGS (3)
  1. SIMCOR [Suspect]
     Indication: HIGH DENSITY LIPOPROTEIN DECREASED
     Dosage: 1000/20MG AT BEDTIME
     Route: 048
     Dates: start: 20080922
  2. SIMCOR [Suspect]
     Indication: LOW DENSITY LIPOPROTEIN INCREASED
  3. MUSCLE RELAXANT [Concomitant]
     Indication: INFLAMMATION

REACTIONS (4)
  - ADVERSE DRUG REACTION [None]
  - FEELING HOT [None]
  - PARAESTHESIA [None]
  - PRURITUS [None]
